FAERS Safety Report 23302098 (Version 2)
Quarter: 2023Q4

REPORT INFORMATION
  Report Type: Spontaneous
  Country: ID (occurrence: ID)
  Receive Date: 20231215
  Receipt Date: 20231221
  Transmission Date: 20240110
  Serious: Yes (Death, Life-Threatening, Hospitalization, Other)
  Sender: FDA-Public Use
  Company Number: ID-MLMSERVICE-20231204-4705281-1

PATIENT
  Age: 58 Year
  Sex: Male

DRUGS (5)
  1. AZITHROMYCIN [Suspect]
     Active Substance: AZITHROMYCIN
     Indication: COVID-19
     Dosage: 500 MG, 1X/DAY
     Dates: start: 202108, end: 2021
  2. CEFTAZIDIME [Suspect]
     Active Substance: CEFTAZIDIME
     Indication: COVID-19
     Dosage: 2G/8 HOURS
     Route: 042
     Dates: start: 202108, end: 2021
  3. DEXAMETHASONE [Suspect]
     Active Substance: DEXAMETHASONE
     Indication: COVID-19
     Dosage: 5 MG, 1X/DAY
     Dates: start: 202108, end: 2021
  4. AMIKACIN [Suspect]
     Active Substance: AMIKACIN
     Indication: COVID-19
     Dosage: 250 MG/8 HOURS
     Dates: start: 202108, end: 2021
  5. ISOPRINOSINE [Concomitant]
     Active Substance: INOSINE PRANOBEX
     Indication: COVID-19
     Dosage: 500 MG/8 HOURS
     Dates: start: 202108, end: 2021

REACTIONS (4)
  - Cellulitis orbital [Fatal]
  - Brain abscess [Fatal]
  - Sinusitis fungal [Fatal]
  - Off label use [Unknown]

NARRATIVE: CASE EVENT DATE: 20210101
